FAERS Safety Report 5373282-X (Version None)
Quarter: 2007Q2

REPORT INFORMATION
  Report Type: 
  Country: None (occurrence: None)
  Receive Date: 20070626
  Receipt Date: 20070626
  Transmission Date: 20071010
  Serious: Yes (Hospitalization, Other)
  Sender: FDA-Public Use
  Company Number: None

PATIENT
  Age: 55 Year
  Sex: Female
  Weight: 61.2356 kg

DRUGS (2)
  1. ZELNORM [Suspect]
     Indication: IRRITABLE BOWEL SYNDROME
     Dates: start: 20060706
  2. AMITIZA [Suspect]
     Indication: IRRITABLE BOWEL SYNDROME
     Dates: start: 20070601, end: 20070604

REACTIONS (15)
  - ABNORMAL BEHAVIOUR [None]
  - ASTHENIA [None]
  - DEPRESSION [None]
  - DISORIENTATION [None]
  - FATIGUE [None]
  - FLAT AFFECT [None]
  - GASTRIC DISORDER [None]
  - HALLUCINATION [None]
  - HALLUCINATION, AUDITORY [None]
  - ILL-DEFINED DISORDER [None]
  - PARTIAL SEIZURES [None]
  - PHARMACEUTICAL PRODUCT COMPLAINT [None]
  - PHOTOPHOBIA [None]
  - SOMNOLENCE [None]
  - VISION BLURRED [None]
